FAERS Safety Report 15023470 (Version 1)
Quarter: 2018Q2

REPORT INFORMATION
  Report Type: Spontaneous
  Country: US (occurrence: US)
  Receive Date: 20180525
  Receipt Date: 20180525
  Transmission Date: 20180711
  Serious: Yes (Hospitalization)
  Sender: FDA-Public Use
  Company Number: None

PATIENT
  Age: 59 Year
  Sex: Female
  Weight: 88.9 kg

DRUGS (2)
  1. EZETIMBE-SIMVASTATIN 10/40MG [Suspect]
     Active Substance: EZETIMIBE\SIMVASTATIN
     Indication: HYPERTRIGLYCERIDAEMIA
     Route: 048
     Dates: start: 201707, end: 201708
  2. EZETIMBE-SIMVASTATIN 10/40MG [Suspect]
     Active Substance: EZETIMIBE\SIMVASTATIN
     Indication: HYPERLIPIDAEMIA
     Dates: start: 201801

REACTIONS (3)
  - Abscess [None]
  - Diverticulitis [None]
  - Small intestinal obstruction [None]

NARRATIVE: CASE EVENT DATE: 20170829
